FAERS Safety Report 19990532 (Version 1)
Quarter: 2021Q4

REPORT INFORMATION
  Report Type: Spontaneous
  Country: US (occurrence: US)
  Receive Date: 20211023
  Receipt Date: 20211023
  Transmission Date: 20220303
  Serious: Yes (Disabling)
  Sender: FDA-Public Use
  Company Number: None

PATIENT
  Age: 54 Year
  Sex: Female
  Weight: 70.2 kg

DRUGS (1)
  1. MOTEGRITY [Suspect]
     Active Substance: PRUCALOPRIDE SUCCINATE
     Indication: Impaired gastric emptying
     Dosage: ?          QUANTITY:1 TABLET(S);
     Route: 048
     Dates: start: 20211020, end: 20211022

REACTIONS (7)
  - Rash macular [None]
  - Rash papular [None]
  - Rash [None]
  - Burning sensation [None]
  - Wheezing [None]
  - Dyspnoea [None]
  - Tracheal inflammation [None]

NARRATIVE: CASE EVENT DATE: 20211022
